FAERS Safety Report 24985831 (Version 1)
Quarter: 2025Q1

REPORT INFORMATION
  Report Type: Spontaneous
  Country: US (occurrence: US)
  Receive Date: 20250219
  Receipt Date: 20250219
  Transmission Date: 20250409
  Serious: Yes (Hospitalization, Other)
  Sender: SANOFI AVENTIS
  Company Number: US-DialogSolutions-SAAVPROD-PI740094-C1

PATIENT
  Age: 7 Month
  Sex: Male

DRUGS (11)
  1. ENOXAPARIN SODIUM [Suspect]
     Active Substance: ENOXAPARIN SODIUM
     Indication: Venous thrombosis
  2. SODIUM CHLORIDE [Concomitant]
     Active Substance: SODIUM CHLORIDE
  3. EPINEPHRINE [Concomitant]
     Active Substance: EPINEPHRINE
     Indication: Hypotension
     Route: 041
  4. CEFTRIAXONE [Concomitant]
     Active Substance: CEFTRIAXONE
     Indication: Septic shock
  5. METHAMPHETAMINE [Concomitant]
     Active Substance: METHAMPHETAMINE
  6. MIDAZOLAM [Concomitant]
     Active Substance: MIDAZOLAM
     Indication: Gaze palsy
  7. MIDAZOLAM [Concomitant]
     Active Substance: MIDAZOLAM
     Indication: Dyskinesia
  8. VIGABATRIN [Concomitant]
     Active Substance: VIGABATRIN
     Indication: Seizure
  9. VIGABATRIN [Concomitant]
     Active Substance: VIGABATRIN
     Indication: Infantile spasms
  10. CLOBAZAM [Concomitant]
     Active Substance: CLOBAZAM
     Indication: Seizure
  11. CLOBAZAM [Concomitant]
     Active Substance: CLOBAZAM
     Indication: Infantile spasms

REACTIONS (4)
  - Shock haemorrhagic [Not Recovered/Not Resolved]
  - Haematochezia [Not Recovered/Not Resolved]
  - Intra-abdominal haematoma [Not Recovered/Not Resolved]
  - Abdominal distension [Not Recovered/Not Resolved]
